FAERS Safety Report 16050568 (Version 1)
Quarter: 2019Q1

REPORT INFORMATION
  Report Type: Spontaneous
  Country: ES (occurrence: ES)
  Receive Date: 20190308
  Receipt Date: 20190308
  Transmission Date: 20190418
  Serious: Yes (Other)
  Sender: FDA-Public Use
  Company Number: ES-ACCORD-111415

PATIENT
  Age: 28 Year
  Sex: Male

DRUGS (2)
  1. BRENTUXIMAB VEDOTIN [Concomitant]
     Active Substance: BRENTUXIMAB VEDOTIN
     Indication: NON-HODGKIN^S LYMPHOMA STAGE II
     Dosage: DAY 1
     Dates: start: 20180226, end: 2018
  2. BENDAMUSTINE/BENDAMUSTINE HYDROCHLORIDE [Suspect]
     Active Substance: BENDAMUSTINE HYDROCHLORIDE
     Indication: NON-HODGKIN^S LYMPHOMA STAGE II
     Dosage: DAYS 1 AND 2, DAY 2 OF THE SECOND CYCLE, 4 HOURS AFTER ADMINISTRATION
     Dates: start: 20180226, end: 2018

REACTIONS (6)
  - Type IV hypersensitivity reaction [Recovered/Resolved]
  - Pruritus [Recovered/Resolved]
  - Rash maculo-papular [Recovered/Resolved]
  - Angioedema [Recovered/Resolved]
  - Palatal oedema [Recovered/Resolved]
  - Dyspnoea [Recovered/Resolved]
